FAERS Safety Report 8213397-1 (Version None)
Quarter: 2012Q1

REPORT INFORMATION
  Report Type: 
  Country: None (occurrence: None)
  Receive Date: 20120315
  Receipt Date: 20120309
  Transmission Date: 20120608
  Serious: Yes (Disabling)
  Sender: FDA-Public Use
  Company Number: FR-ROCHE-1047861

PATIENT
  Age: 61 Year
  Sex: Female

DRUGS (6)
  1. HERCEPTIN [Suspect]
     Indication: BREAST CANCER
     Dosage: COMPLETED 6 CYCLES
     Route: 042
     Dates: start: 20100223, end: 20100608
  2. CARBOPLATIN [Suspect]
     Indication: BREAST CANCER
     Dosage: COMPLETED 6 CYCLES
     Route: 042
     Dates: start: 20100223, end: 20100608
  3. HERCEPTIN [Suspect]
     Dosage: COMPLETED 11 CYCLES
     Dates: start: 20100629, end: 20110125
  4. AVASTIN [Suspect]
     Indication: BREAST CANCER
     Dosage: COMPLETED 6 CYCLES
     Route: 042
     Dates: start: 20100223, end: 20100608
  5. DOCETAXEL [Suspect]
     Indication: BREAST CANCER
     Dosage: COMPLETED 6 CYCLES
     Route: 042
     Dates: start: 20100223, end: 20100608
  6. AVASTIN [Suspect]
     Dosage: COMPLETED 11 CYCLES
     Dates: start: 20100629, end: 20110125

REACTIONS (1)
  - ALOPECIA [None]
